FAERS Safety Report 4776775-9 (Version None)
Quarter: 2005Q3

REPORT INFORMATION
  Report Type: 
  Country: None (occurrence: None)
  Receive Date: 20050921
  Receipt Date: 20050912
  Transmission Date: 20060218
  Serious: Yes (Hospitalization, Other)
  Sender: FDA-Public Use
  Company Number: 2005127429

PATIENT
  Age: 64 Year
  Sex: Female

DRUGS (18)
  1. BEXTRA [Suspect]
     Indication: OSTEOARTHRITIS
  2. ACCUPRIL [Concomitant]
  3. LIPITOR [Concomitant]
  4. ACTOS [Concomitant]
  5. GLYBURIDE [Concomitant]
  6. GLUCOPHAGE (METFORMIN HDYROCHLORIDE) [Concomitant]
  7. PRILOSEC [Concomitant]
  8. LEXAPRO [Concomitant]
  9. CYMBALTA [Concomitant]
  10. KEPPRA [Concomitant]
  11. ATARAX [Concomitant]
  12. CLARINEX [Concomitant]
  13. GLUCOSAMINE WITH MSM (GLUCOSAMNE, METHYLSULFONYLMETHANE) [Concomitant]
  14. MULTIVITAMIN [Concomitant]
  15. METAMUCIL-2 [Concomitant]
  16. LORTAB [Concomitant]
  17. BETASERON [Concomitant]
  18. DETROL LA [Concomitant]

REACTIONS (7)
  - BURSA DISORDER [None]
  - CHONDROPATHY [None]
  - FALL [None]
  - JOINT RANGE OF MOTION DECREASED [None]
  - LIMB INJURY [None]
  - MUSCLE INJURY [None]
  - SCIATICA [None]
